FAERS Safety Report 6369775-9 (Version None)
Quarter: 2009Q3

REPORT INFORMATION
  Report Type: 
  Country: None (occurrence: None)
  Receive Date: 20090922
  Receipt Date: 20090922
  Transmission Date: 20100115
  Serious: No
  Sender: FDA-Public Use
  Company Number: None

PATIENT
  Sex: Female
  Weight: 105.9 kg

DRUGS (1)
  1. SYNTHROID [Suspect]
     Dosage: 12MCG  PO QD
     Route: 048

REACTIONS (1)
  - PRODUCT SUBSTITUTION ISSUE [None]
